FAERS Safety Report 8730167 (Version 2)
Quarter: 2012Q4

REPORT INFORMATION
  Report Type: Report from Study
  Country: US (occurrence: US)
  Receive Date: 20120817
  Receipt Date: 20121012
  Transmission Date: 20130627
  Serious: Yes (Hospitalization)
  Sender: FDA-Public Use
  Company Number: US-TEVA-353014USA

PATIENT
  Age: 71 Year
  Sex: Male
  Weight: 92.2 kg

DRUGS (10)
  1. CUSTIRSEN SODIUM [Suspect]
     Indication: SALIVARY GLAND CANCER
     Dosage: dose 1
     Route: 042
     Dates: start: 20120806, end: 20120806
  2. PACLITAXEL [Suspect]
     Indication: SALIVARY GLAND CANCER
  3. CARBOPLATIN [Suspect]
     Indication: SALIVARY GLAND CANCER
  4. FLOMAX [Concomitant]
  5. FINASTERIDE [Concomitant]
     Indication: BENIGN PROSTATIC HYPERPLASIA
     Dosage: .5 Milligram Daily;
     Route: 048
     Dates: start: 2006
  6. DURAGESIC [Concomitant]
     Indication: PAIN
     Dosage: every 72 hours
     Route: 062
     Dates: start: 201205
  7. GABAPENTIN [Concomitant]
     Indication: NEUROPATHY PERIPHERAL
     Dosage: 900 Milligram Daily;
     Route: 048
     Dates: start: 2012
  8. ATENOLOL [Concomitant]
     Indication: HYPERTENSION
     Dosage: 25 Milligram Daily;
     Route: 048
     Dates: start: 2006
  9. OXYCODONE [Concomitant]
     Indication: PAIN
     Dosage: 10/325 mg
     Route: 048
     Dates: start: 2009
  10. TAMSULOSIN [Concomitant]
     Indication: BENIGN PROSTATIC HYPERPLASIA
     Dosage: .5 Milligram Daily;
     Route: 048
     Dates: start: 2006

REACTIONS (1)
  - Hypotension [Recovered/Resolved]
